FAERS Safety Report 25210461 (Version 1)
Quarter: 2025Q2

REPORT INFORMATION
  Report Type: Report from Study
  Country: US (occurrence: US)
  Receive Date: 20250417
  Receipt Date: 20250417
  Transmission Date: 20250717
  Serious: Yes (Other)
  Sender: NOVARTIS
  Company Number: US-002147023-NVSC2025US036926

PATIENT
  Age: 32 Year
  Sex: Female
  Weight: 69.388 kg

DRUGS (24)
  1. KESIMPTA [Suspect]
     Active Substance: OFATUMUMAB
     Indication: Multiple sclerosis
     Dosage: 20 MG, QMO
     Route: 058
     Dates: start: 20210926, end: 20221023
  2. CLINDAMYCIN [Suspect]
     Active Substance: CLINDAMYCIN
     Indication: Acne
     Dosage: UNK, QD (TOPICAL-FACE, SCALP AND/OR SKIN)
     Route: 065
     Dates: start: 20221020, end: 20230724
  3. BENADRYL [Suspect]
     Active Substance: DIPHENHYDRAMINE HYDROCHLORIDE
     Indication: Nasal congestion
     Dosage: UNK, Q3W (1 PILL)
     Route: 048
     Dates: start: 20221020, end: 20230415
  4. BENADRYL [Suspect]
     Active Substance: DIPHENHYDRAMINE HYDROCHLORIDE
     Indication: Hypersensitivity
  5. BENADRYL [Suspect]
     Active Substance: DIPHENHYDRAMINE HYDROCHLORIDE
     Indication: Oropharyngeal pain
  6. COLACE [Suspect]
     Active Substance: DOCUSATE SODIUM
     Indication: Faeces hard
     Dosage: 1 DOSAGE FORM, QD
     Route: 048
     Dates: start: 20230515, end: 20230724
  7. FISH OIL [Suspect]
     Active Substance: FISH OIL
     Indication: Pregnancy
     Dosage: 1400 MG, QD
     Route: 048
     Dates: start: 20230515, end: 20230724
  8. KETOCONAZOLE [Suspect]
     Active Substance: KETOCONAZOLE
     Indication: Rash
     Route: 065
     Dates: start: 20221020, end: 20230724
  9. MUCINEX [Suspect]
     Active Substance: GUAIFENESIN
     Indication: Respiratory symptom
     Dosage: 1 DOSAGE FORM, BID
     Route: 048
     Dates: start: 20221020, end: 20221113
  10. MUCINEX [Suspect]
     Active Substance: GUAIFENESIN
     Indication: Nasopharyngitis
  11. VITAMINS [Suspect]
     Active Substance: VITAMINS
     Indication: Product used for unknown indication
     Dosage: 1 DOSAGE FORM, QD
     Route: 048
     Dates: start: 20220901, end: 20230724
  12. PROBIOTICS NOS [Suspect]
     Active Substance: PROBIOTICS NOS
     Indication: Dyspepsia
     Dosage: 1 DOSAGE FORM, QD
     Route: 048
     Dates: start: 20221020, end: 20230724
  13. TYLENOL [Suspect]
     Active Substance: ACETAMINOPHEN
     Indication: Respiratory symptom
     Dosage: 20 DOSAGE FORM, BID
     Route: 048
     Dates: start: 20221020, end: 20221113
  14. TYLENOL [Suspect]
     Active Substance: ACETAMINOPHEN
     Indication: Nasopharyngitis
  15. VITAMIN D [Suspect]
     Active Substance: VITAMIN D NOS
     Indication: Multiple sclerosis
     Dosage: UNK, QD (5000 UNITS)
     Route: 048
     Dates: start: 20221020, end: 20230724
  16. ZITHROMAX [Suspect]
     Active Substance: AZITHROMYCIN DIHYDRATE
     Indication: Respiratory tract infection
     Dosage: 1 DOSAGE FORM, QD
     Route: 048
     Dates: start: 20221103, end: 20221107
  17. ZYRTEC [Suspect]
     Active Substance: CETIRIZINE HYDROCHLORIDE
     Indication: Hypersensitivity
     Dosage: 1 DOSAGE FORM, QW
     Route: 048
     Dates: start: 20221020, end: 20230415
  18. BOOSTRIX [Concomitant]
     Active Substance: TETANUS TOXOID, REDUCED DIPHTHERIA TOXOID AND ACELLULAR PERTUSSIS VACCINE, ADSORBED ANTIGENS
     Indication: Product used for unknown indication
     Dosage: 1 DOSAGE FORM, QD
     Route: 030
     Dates: start: 20230524, end: 20230524
  19. INFLUENZA VIRUS VACCINE [Concomitant]
     Active Substance: INFLUENZA VIRUS VACCINE
     Indication: Pregnancy
     Dosage: 1 DOSAGE FORM, QD
     Route: 030
     Dates: start: 20221001, end: 20221001
  20. COVID-19 vaccine [Concomitant]
     Indication: Product used for unknown indication
     Dosage: 1 DOSAGE FORM, QD
     Route: 030
     Dates: start: 20210227, end: 20210227
  21. COVID-19 vaccine [Concomitant]
     Dosage: 1 DOSAGE FORM, QD
     Route: 030
     Dates: start: 20210327, end: 20210327
  22. COVID-19 vaccine [Concomitant]
     Dosage: 1 DOSAGE FORM, QD
     Route: 030
     Dates: start: 20211206, end: 20211206
  23. LEVOTHYROXINE SODIUM [Concomitant]
     Active Substance: LEVOTHYROXINE SODIUM
     Indication: Graves^ disease
     Dosage: 175 UG, QD
     Route: 048
     Dates: start: 20080701, end: 20230724
  24. LEVOTHYROXINE SODIUM [Concomitant]
     Active Substance: LEVOTHYROXINE SODIUM
     Indication: Hypothyroidism

REACTIONS (4)
  - Injection site reaction [Unknown]
  - Lower respiratory tract infection [Unknown]
  - Dyspnoea [Unknown]
  - Nasopharyngitis [Unknown]

NARRATIVE: CASE EVENT DATE: 20220722
